FAERS Safety Report 6650485-5 (Version None)
Quarter: 2010Q1

REPORT INFORMATION
  Report Type: 
  Country: None (occurrence: None)
  Receive Date: 20100325
  Receipt Date: 20100302
  Transmission Date: 20100710
  Serious: No
  Sender: FDA-Public Use
  Company Number: US-BIOGENIDEC-2010BI006907

PATIENT
  Sex: Female

DRUGS (2)
  1. AVONEX [Suspect]
     Indication: MULTIPLE SCLEROSIS
     Route: 030
     Dates: start: 20040205, end: 20050201
  2. AVONEX [Suspect]
     Route: 030
     Dates: start: 20060206

REACTIONS (2)
  - AGEUSIA [None]
  - ANOSMIA [None]
